APPROVED DRUG PRODUCT: STAPHCILLIN
Active Ingredient: METHICILLIN SODIUM
Strength: EQ 5.4GM BASE/VIAL
Dosage Form/Route: INJECTABLE;INJECTION
Application: N050117 | Product #003
Applicant: APOTHECON INC DIV BRISTOL MYERS SQUIBB
Approved: Approved Prior to Jan 1, 1982 | RLD: No | RS: No | Type: DISCN